FAERS Safety Report 7472306-3 (Version None)
Quarter: 2011Q2

REPORT INFORMATION
  Report Type: 
  Country: None (occurrence: None)
  Receive Date: 20110502
  Receipt Date: 20110419
  Transmission Date: 20111010
  Serious: Yes (Other)
  Sender: FDA-Public Use
  Company Number: PHHY2010IT66741

PATIENT
  Age: 69 Year
  Sex: Male

DRUGS (4)
  1. VISUDYNE [Suspect]
     Indication: CHOROIDAL NEOVASCULARISATION
  2. LIPID LOWERING DRUGS [Concomitant]
  3. DIURETICS [Concomitant]
  4. ASPIRIN [Concomitant]

REACTIONS (5)
  - VISUAL ACUITY REDUCED [None]
  - CHORIORETINAL DISORDER [None]
  - ISCHAEMIA [None]
  - OEDEMA [None]
  - SCAR [None]
